FAERS Safety Report 7163925-2 (Version None)
Quarter: 2010Q4

REPORT INFORMATION
  Report Type: 
  Country: None (occurrence: None)
  Receive Date: 20101215
  Receipt Date: 20101201
  Transmission Date: 20110411
  Serious: Yes (Other)
  Sender: FDA-Public Use
  Company Number: GB-WATSON-2010-15733

PATIENT
  Age: 48 Year
  Sex: Female
  Weight: 87 kg

DRUGS (6)
  1. RISPERDONE [Suspect]
     Indication: ILL-DEFINED DISORDER
     Dosage: UNK
     Route: 065
  2. LAMOTRIGINE [Suspect]
     Indication: ILL-DEFINED DISORDER
     Dosage: UNK
     Route: 065
  3. TOPIRAMATE [Suspect]
     Indication: DRUG THERAPY
     Dosage: 400 MG, DAILY FOR OVER 1 YEAR
     Route: 048
  4. ANTIDEPRESSANTS [Suspect]
     Indication: ILL-DEFINED DISORDER
     Dosage: UNK
     Route: 065
  5. CARDIOVASCULAR SYSTEM DRUGS [Suspect]
     Indication: ILL-DEFINED DISORDER
     Dosage: UNK
     Route: 065
  6. LOFEPRAMINE [Suspect]
     Indication: ILL-DEFINED DISORDER
     Dosage: UNK
     Route: 065

REACTIONS (5)
  - GAIT DISTURBANCE [None]
  - PARAESTHESIA [None]
  - PARKINSONISM [None]
  - THERAPEUTIC RESPONSE UNEXPECTED [None]
  - WEIGHT DECREASED [None]
